FAERS Safety Report 9345094 (Version 3)
Quarter: 2013Q3

REPORT INFORMATION
  Report Type: Report from Study
  Country: DE (occurrence: DE)
  Receive Date: 20130612
  Receipt Date: 20130725
  Transmission Date: 20140515
  Serious: Yes (Death)
  Sender: FDA-Public Use
  Company Number: DE-ABBOTT-13P-062-1103694-00

PATIENT
  Age: 72 Year
  Sex: Male

DRUGS (3)
  1. SIXANTONE [Suspect]
     Indication: PROSTATE CANCER METASTATIC
     Route: 042
     Dates: start: 20121113, end: 20121113
  2. IBANDRONIC ACID [Concomitant]
     Indication: PROSTATE CANCER METASTATIC
     Route: 065
  3. ASA [Concomitant]
     Indication: PRODUCT USED FOR UNKNOWN INDICATION
     Route: 065

REACTIONS (2)
  - Cardiac failure [Fatal]
  - Disease progression [Fatal]
